FAERS Safety Report 16331035 (Version 1)
Quarter: 2019Q2

REPORT INFORMATION
  Report Type: Spontaneous
  Country: JP (occurrence: JP)
  Receive Date: 20190520
  Receipt Date: 20190520
  Transmission Date: 20190711
  Serious: Yes (Death, Other)
  Sender: FDA-Public Use
  Company Number: JP-ALVOGEN-2019-ALVOGEN-099762

PATIENT
  Age: 34 Year
  Sex: Male

DRUGS (1)
  1. MELPHALAN. [Suspect]
     Active Substance: MELPHALAN
     Indication: EPSTEIN-BARR VIRUS INFECTION
     Dosage: HIGH-DOSE MELPHALAN

REACTIONS (4)
  - Death [Fatal]
  - Respiratory failure [Unknown]
  - Pancytopenia [Unknown]
  - Hyperferritinaemia [Unknown]
